FAERS Safety Report 7055618-7 (Version None)
Quarter: 2010Q4

REPORT INFORMATION
  Report Type: 
  Country: None (occurrence: None)
  Receive Date: 20101021
  Receipt Date: 20101013
  Transmission Date: 20110411
  Serious: Yes (Other)
  Sender: FDA-Public Use
  Company Number: FR-BAYER-201042316GPV

PATIENT
  Age: 68 Year
  Sex: Female
  Weight: 66 kg

DRUGS (5)
  1. NEXAVAR [Suspect]
     Indication: HEPATIC NEOPLASM MALIGNANT
     Dosage: UNIT DOSE: 200 MG
     Route: 048
     Dates: start: 20100423, end: 20100528
  2. PARACETAMOL [Concomitant]
     Indication: PAIN
     Route: 048
     Dates: start: 20100401
  3. OMEPRAZOLE [Concomitant]
     Indication: ABDOMINAL PAIN
     Route: 048
     Dates: start: 20100401
  4. DEXERYL [Concomitant]
     Indication: PALMAR-PLANTAR ERYTHRODYSAESTHESIA SYNDROME
     Route: 061
     Dates: start: 20100424
  5. TEMESTA [Concomitant]
     Indication: ANXIETY
     Route: 048
     Dates: start: 20100421

REACTIONS (2)
  - RASH [None]
  - TOXIC SKIN ERUPTION [None]
